FAERS Safety Report 5649015-6 (Version None)
Quarter: 2008Q1

REPORT INFORMATION
  Report Type: 
  Country: None (occurrence: None)
  Receive Date: 20080304
  Receipt Date: 20080303
  Transmission Date: 20080703
  Serious: Yes (Death)
  Sender: FDA-Public Use
  Company Number: DE-JNJFOC-20080300026

PATIENT
  Sex: Male
  Weight: 92.5 kg

DRUGS (2)
  1. RISPERDAL [Suspect]
     Indication: SCHIZOPHRENIA
  2. SEROQUEL [Suspect]
     Indication: SCHIZOPHRENIA

REACTIONS (1)
  - MYOCARDIAL INFARCTION [None]
